FAERS Safety Report 9274938 (Version 1)
Quarter: 2013Q2

REPORT INFORMATION
  Report Type: Report from Study
  Country: CA (occurrence: CA)
  Receive Date: 20130507
  Receipt Date: 20130507
  Transmission Date: 20140414
  Serious: Yes (Hospitalization, Other)
  Sender: FDA-Public Use
  Company Number: CA-JNJFOC-20130418103

PATIENT
  Sex: Female
  Weight: 61.2 kg

DRUGS (3)
  1. REMICADE [Suspect]
     Indication: URINARY TRACT INFECTION
     Route: 042
  2. REMICADE [Suspect]
     Indication: RHEUMATOID ARTHRITIS
     Route: 042
  3. ANTIBIOTICS UNSPECIFIED [Suspect]
     Indication: SURGERY
     Route: 065

REACTIONS (4)
  - Mass [Recovered/Resolved]
  - Skin reaction [Recovered/Resolved]
  - Pulmonary oedema [Recovered/Resolved]
  - Urinary tract infection [Recovered/Resolved]
